FAERS Safety Report 5479878-9 (Version None)
Quarter: 2007Q4

REPORT INFORMATION
  Report Type: 
  Country: None (occurrence: None)
  Receive Date: 20071008
  Receipt Date: 20071001
  Transmission Date: 20080405
  Serious: Yes (Other)
  Sender: FDA-Public Use
  Company Number: GB-ROXANE LABORATORIES, INC-2007-BP-22239RO

PATIENT
  Age: 52 Year
  Sex: Female

DRUGS (5)
  1. CYCLOPHOSPHAMIDE [Suspect]
     Indication: RHEUMATOID ARTHRITIS
  2. RITUXIMAB [Suspect]
     Indication: RHEUMATOID ARTHRITIS
  3. ANTI-TUMOR NECROSIS FACTOR AGENTS [Suspect]
     Indication: RHEUMATOID ARTHRITIS
  4. STANDARD DISEASE MODIFYING ANTIRHEUMATIC DRUGS [Concomitant]
     Indication: RHEUMATOID ARTHRITIS
  5. TOPICAL STEROIDS [Concomitant]
     Indication: PSORIASIS
     Route: 061

REACTIONS (3)
  - B-LYMPHOCYTE COUNT DECREASED [None]
  - DRUG INEFFECTIVE [None]
  - PSORIASIS [None]
